FAERS Safety Report 22074471 (Version 1)
Quarter: 2023Q1

REPORT INFORMATION
  Report Type: Report from Study
  Country: RO (occurrence: RO)
  Receive Date: 20230308
  Receipt Date: 20230308
  Transmission Date: 20230417
  Serious: Yes (Other)
  Sender: FDA-Public Use
  Company Number: RO-TAKEDA-2021TUS078912

PATIENT
  Age: 55 Year
  Sex: Male

DRUGS (3)
  1. IXAZOMIB [Suspect]
     Active Substance: IXAZOMIB
     Indication: Plasma cell myeloma
     Dosage: 2.3 MILLIGRAM ON DAYS 1,8,15 OF A
     Route: 048
     Dates: start: 20200625
  2. DEXAMETHASONE [Suspect]
     Active Substance: DEXAMETHASONE
     Indication: Plasma cell myeloma
     Dosage: 20 MILLIGRAM 2TBS/DAY IN DAYS 1,8,15,22 OF A 28 DAYS CYCLE
     Route: 065
     Dates: start: 20200625
  3. LENALIDOMIDE [Suspect]
     Active Substance: LENALIDOMIDE
     Indication: Plasma cell myeloma
     Dosage: 10 MILLIGRAM 1TB/2 DAYS IN DAYS 1-21 OF A 28-DAY CYCLE
     Route: 065
     Dates: start: 20200625

REACTIONS (2)
  - Cataract [Recovering/Resolving]
  - Toxicity to various agents [Not Recovered/Not Resolved]

NARRATIVE: CASE EVENT DATE: 20211101
